FAERS Safety Report 17717175 (Version 3)
Quarter: 2020Q2

REPORT INFORMATION
  Report Type: Spontaneous
  Country: US (occurrence: US)
  Receive Date: 20200428
  Receipt Date: 20200513
  Transmission Date: 20200714
  Serious: No
  Sender: FDA-Public Use
  Company Number: US-PFIZER INC-2020168850

PATIENT
  Age: 78 Year
  Sex: Male
  Weight: 70.31 kg

DRUGS (1)
  1. VIAGRA [Suspect]
     Active Substance: SILDENAFIL CITRATE
     Indication: ERECTILE DYSFUNCTION
     Dosage: 100 MG

REACTIONS (4)
  - Headache [Recovered/Resolved]
  - Cyanopsia [Unknown]
  - Throat tightness [Unknown]
  - Conjunctival hyperaemia [Unknown]
